FAERS Safety Report 19356403 (Version 1)
Quarter: 2021Q2

REPORT INFORMATION
  Report Type: Spontaneous
  Country: PL (occurrence: PL)
  Receive Date: 20210601
  Receipt Date: 20210601
  Transmission Date: 20210717
  Serious: Yes (Death, Other)
  Sender: FDA-Public Use
  Company Number: PL-009507513-2105POL006969

PATIENT
  Sex: Male

DRUGS (1)
  1. PEMBROLIZUMAB. [Suspect]
     Active Substance: PEMBROLIZUMAB
     Indication: NON-SMALL CELL LUNG CANCER
     Dosage: 200 MILLIGRAM
     Dates: start: 202104

REACTIONS (7)
  - Hypernatraemia [Unknown]
  - Agitation [Unknown]
  - Hypercalcaemia [Unknown]
  - Speech disorder [Unknown]
  - Somnolence [Unknown]
  - Death [Fatal]
  - Nervous system disorder [Unknown]

NARRATIVE: CASE EVENT DATE: 2021
